FAERS Safety Report 20002453 (Version 1)
Quarter: 2021Q4

REPORT INFORMATION
  Report Type: Spontaneous
  Country: GB (occurrence: GB)
  Receive Date: 20211027
  Receipt Date: 20211027
  Transmission Date: 20220303
  Serious: Yes (Hospitalization, Other)
  Sender: FDA-Public Use
  Company Number: GB-COOPERSURGICAL, INC.-GB-2021CPS003191

PATIENT
  Age: 49 Year
  Sex: Female

DRUGS (1)
  1. PARAGARD T 380A [Suspect]
     Active Substance: COPPER
     Dosage: UNK
     Route: 015

REACTIONS (5)
  - Actinomycotic abdominal infection [Recovered/Resolved]
  - Large intestine perforation [Recovered/Resolved]
  - Ascites [Recovered/Resolved]
  - Device material issue [Recovered/Resolved]
  - Device use issue [Unknown]
